FAERS Safety Report 12353563 (Version 4)
Quarter: 2016Q2

REPORT INFORMATION
  Report Type: Report from Study
  Country: US (occurrence: US)
  Receive Date: 20160511
  Receipt Date: 20160602
  Transmission Date: 20160815
  Serious: No
  Sender: FDA-Public Use
  Company Number: US-AMGEN-USASL2016057865

PATIENT
  Age: 12 Year
  Sex: Female

DRUGS (5)
  1. BENADRYL [Suspect]
     Active Substance: DIPHENHYDRAMINE HYDROCHLORIDE
     Indication: INJECTION SITE ERYTHEMA
  2. BENADRYL [Suspect]
     Active Substance: DIPHENHYDRAMINE HYDROCHLORIDE
     Indication: INJECTION SITE PRURITUS
     Dosage: UNK
     Route: 065
     Dates: start: 201605
  3. ENBREL [Suspect]
     Active Substance: ETANERCEPT
     Dosage: 50 MG, QWK
     Route: 065
     Dates: start: 20160408
  4. ENBREL [Suspect]
     Active Substance: ETANERCEPT
     Indication: JUVENILE IDIOPATHIC ARTHRITIS
     Dosage: 50 MG, QWK
     Route: 065
     Dates: start: 20160404
  5. BENADRYL [Suspect]
     Active Substance: DIPHENHYDRAMINE HYDROCHLORIDE
     Indication: INJECTION SITE SWELLING

REACTIONS (9)
  - Injection site extravasation [Unknown]
  - Underdose [Unknown]
  - Wrong technique in product usage process [Unknown]
  - Drug effect incomplete [Unknown]
  - Injection site swelling [Unknown]
  - Injection site inflammation [Unknown]
  - Injection site erythema [Unknown]
  - Injection site pain [Recovered/Resolved]
  - Injection site pruritus [Unknown]

NARRATIVE: CASE EVENT DATE: 2016
